FAERS Safety Report 7518646-0 (Version None)
Quarter: 2011Q2

REPORT INFORMATION
  Report Type: 
  Country: None (occurrence: None)
  Receive Date: 20110601
  Receipt Date: 20110601
  Transmission Date: 20111010
  Serious: Yes (Other)
  Sender: FDA-Public Use
  Company Number: None

PATIENT
  Age: 55 Year
  Sex: Male
  Weight: 90.7194 kg

DRUGS (1)
  1. GABAPENTIN [Suspect]
     Indication: NEURALGIA
     Dosage: 300 THEN INCREASING 3 X DAY PO
     Route: 048
     Dates: start: 20051105, end: 20051111

REACTIONS (3)
  - APHASIA [None]
  - MEMORY IMPAIRMENT [None]
  - OFF LABEL USE [None]
